FAERS Safety Report 7828383-0 (Version None)
Quarter: 2011Q4

REPORT INFORMATION
  Report Type: 
  Country: None (occurrence: None)
  Receive Date: 20111020
  Receipt Date: 20111018
  Transmission Date: 20120403
  Serious: No
  Sender: FDA-Public Use
  Company Number: US-PFIZER INC-2011250923

PATIENT
  Sex: Male
  Weight: 84.4 kg

DRUGS (1)
  1. PRISTIQ [Suspect]
     Indication: ANXIETY
     Dosage: 50 MG DAILY
     Route: 048
     Dates: start: 20111001

REACTIONS (3)
  - NAUSEA [None]
  - INSOMNIA [None]
  - HYPERHIDROSIS [None]
